FAERS Safety Report 25013764 (Version 1)
Quarter: 2025Q1

REPORT INFORMATION
  Report Type: Spontaneous
  Country: US (occurrence: US)
  Receive Date: 20250226
  Receipt Date: 20250226
  Transmission Date: 20250409
  Serious: No
  Sender: UCB
  Company Number: US-UCBSA-2024036953

PATIENT
  Age: 68 Year
  Sex: Female
  Weight: 74.83 kg

DRUGS (6)
  1. KEPPRA [Suspect]
     Active Substance: LEVETIRACETAM
     Indication: Seizure
     Dosage: 1,000 MG IN AM AND 750 MG IN PM
  2. KEPPRA [Suspect]
     Active Substance: LEVETIRACETAM
     Indication: Focal dyscognitive seizures
  3. KEPPRA [Suspect]
     Active Substance: LEVETIRACETAM
     Indication: Off label use
  4. GABAPENTIN [Suspect]
     Active Substance: GABAPENTIN
     Indication: Seizure
  5. GABAPENTIN [Suspect]
     Active Substance: GABAPENTIN
     Indication: Focal dyscognitive seizures
     Dosage: 400 MILLIGRAM, 2X/DAY (BID)
  6. VALIUM [Concomitant]
     Active Substance: DIAZEPAM
     Indication: Seizure prophylaxis

REACTIONS (11)
  - Fatigue [Unknown]
  - Somnolence [Unknown]
  - Weight increased [Unknown]
  - Visual impairment [Unknown]
  - Chest pain [Unknown]
  - Palpitations [Unknown]
  - Myalgia [Unknown]
  - Arthralgia [Unknown]
  - Hypertension [Unknown]
  - Drug ineffective [Unknown]
  - Off label use [Unknown]

NARRATIVE: CASE EVENT DATE: 20240618
